FAERS Safety Report 18603916 (Version 1)
Quarter: 2020Q4

REPORT INFORMATION
  Report Type: Spontaneous
  Country: US (occurrence: US)
  Receive Date: 20201210
  Receipt Date: 20201210
  Transmission Date: 20210114
  Serious: No
  Sender: FDA-Public Use
  Company Number: None

PATIENT
  Age: 29 Year
  Sex: Female
  Weight: 52.16 kg

DRUGS (1)
  1. NEXPLANON [Suspect]
     Active Substance: ETONOGESTREL
     Dates: start: 20190322

REACTIONS (11)
  - Abdominal distension [None]
  - Complication associated with device [None]
  - Breast tenderness [None]
  - Mood swings [None]
  - Implantation complication [None]
  - Depression [None]
  - Vulvovaginal swelling [None]
  - Menstruation irregular [None]
  - Dysmenorrhoea [None]
  - Menorrhagia [None]
  - Pain [None]
